FAERS Safety Report 12157374 (Version 1)
Quarter: 2016Q1

REPORT INFORMATION
  Report Type: Spontaneous
  Country: US (occurrence: US)
  Receive Date: 20160308
  Receipt Date: 20160308
  Transmission Date: 20160526
  Serious: Yes (Other)
  Sender: FDA-Public Use
  Company Number: US-ROCHE-1722477

PATIENT

DRUGS (1)
  1. RITUXAN [Suspect]
     Active Substance: RITUXIMAB
     Indication: LYMPHOMA
     Dosage: RECEIVED 3 DOSES IN JULY AND AUGUST LAST YEAR
     Route: 065

REACTIONS (5)
  - Nausea [Unknown]
  - Urticaria [Unknown]
  - Petechiae [Unknown]
  - Vomiting [Unknown]
  - Rash [Unknown]
